FAERS Safety Report 4832131-6 (Version None)
Quarter: 2005Q4

REPORT INFORMATION
  Report Type: 
  Country: None (occurrence: None)
  Receive Date: 20051118
  Receipt Date: 20051102
  Transmission Date: 20060501
  Serious: Yes (Hospitalization)
  Sender: FDA-Public Use
  Company Number: NZ-MERCK-0511NZL00001

PATIENT
  Age: 77 Year
  Sex: Male

DRUGS (10)
  1. DIGOXIN [Concomitant]
     Indication: HEART RATE IRREGULAR
     Route: 048
  2. NITROGLYCERIN [Concomitant]
     Route: 065
  3. ZOCOR [Suspect]
     Indication: BLOOD CHOLESTEROL INCREASED
     Route: 048
     Dates: start: 20030101
  4. ZOCOR [Suspect]
     Indication: CEREBROVASCULAR ACCIDENT
     Route: 048
     Dates: start: 20030101
  5. ALBUTEROL SULFATE AND IPRATROPIUM BROMIDE [Concomitant]
     Indication: DYSPNOEA
     Route: 055
  6. FLUTICASONE PROPIONATE [Concomitant]
     Indication: DYSPNOEA
     Route: 055
  7. LOSARTAN POTASSIUM [Concomitant]
     Indication: BLOOD PRESSURE
     Route: 065
  8. FUROSEMIDE [Concomitant]
     Route: 065
  9. DILTIAZEM HYDROCHLORIDE [Concomitant]
     Indication: ANGINA PECTORIS
     Route: 065
  10. WARFARIN [Concomitant]
     Indication: THROMBOSIS PROPHYLAXIS
     Route: 065

REACTIONS (2)
  - DYSPNOEA [None]
  - FALL [None]
